FAERS Safety Report 4372828-8 (Version None)
Quarter: 2004Q2

REPORT INFORMATION
  Report Type: 
  Country: None (occurrence: None)
  Receive Date: 20040603
  Receipt Date: 20030612
  Transmission Date: 20050107
  Serious: Yes (Death)
  Sender: FDA-Public Use
  Company Number: F01200300573

PATIENT
  Age: 66 Year
  Sex: Male

DRUGS (5)
  1. OXALIPLATIN) - SOLUTION - 85 MG/M2 [Suspect]
     Indication: GASTROINTESTINAL CANCER METASTATIC
     Dosage: 85 MG/M2 Q2W
     Route: 042
     Dates: start: 20030527, end: 20030527
  2. FLUOROURACIL [Suspect]
     Dosage: 500 MG/M2 BOLUS-DAY, 1,8, 15 EVERY 4 WEEKS
     Route: 040
     Dates: start: 20030527, end: 20030527
  3. LEUCOVORIN CALCIUM [Suspect]
     Dosage: 20 MG/M2 WEEKS 1, 2, 3 EVERY 4 WEEKS
     Route: 042
     Dates: start: 20030527, end: 20030527
  4. RANITIDINE [Concomitant]
  5. TRAMADOL HCL [Concomitant]

REACTIONS (4)
  - ACUTE MYOCARDIAL INFARCTION [None]
  - DIARRHOEA [None]
  - HAEMOGLOBIN DECREASED [None]
  - SUDDEN DEATH [None]
